FAERS Safety Report 6932180-8 (Version None)
Quarter: 2010Q3

REPORT INFORMATION
  Report Type: 
  Country: None (occurrence: None)
  Receive Date: 20100819
  Receipt Date: 20100810
  Transmission Date: 20110219
  Serious: Yes (Hospitalization)
  Sender: FDA-Public Use
  Company Number: B0670476A

PATIENT
  Age: 58 Year
  Sex: Female

DRUGS (11)
  1. KEPPRA [Suspect]
     Indication: PRODUCT USED FOR UNKNOWN INDICATION
     Dosage: 1500MG PER DAY
     Route: 048
     Dates: start: 20100127
  2. UNKNOWN STUDY DRUG [Suspect]
     Indication: PROPHYLAXIS
     Route: 065
     Dates: start: 20100203
  3. RADIATION [Suspect]
     Indication: PRODUCT USED FOR UNKNOWN INDICATION
     Route: 065
     Dates: start: 20100203, end: 20100219
  4. DECADRON [Suspect]
     Indication: PRODUCT USED FOR UNKNOWN INDICATION
     Dosage: 4MG TWICE PER DAY
     Route: 048
     Dates: start: 20100129
  5. MS CONTIN [Suspect]
     Indication: PRODUCT USED FOR UNKNOWN INDICATION
     Dosage: 45MG TWICE PER DAY
     Route: 048
     Dates: start: 20100129
  6. REMERON [Suspect]
     Indication: PRODUCT USED FOR UNKNOWN INDICATION
     Route: 065
     Dates: start: 20100129
  7. DILANTIN [Suspect]
     Indication: PRODUCT USED FOR UNKNOWN INDICATION
     Route: 065
     Dates: start: 20100129, end: 20100314
  8. LEVAQUIN [Suspect]
     Indication: PRODUCT USED FOR UNKNOWN INDICATION
     Route: 065
  9. ADVAIR DISKUS 100/50 [Suspect]
     Indication: PRODUCT USED FOR UNKNOWN INDICATION
     Route: 055
     Dates: start: 20100127
  10. ALBUTEROL [Suspect]
     Indication: PRODUCT USED FOR UNKNOWN INDICATION
     Route: 055
     Dates: start: 20100129
  11. SPIRIVA [Suspect]
     Indication: PRODUCT USED FOR UNKNOWN INDICATION
     Dosage: 1PUFF PER DAY
     Route: 055
     Dates: start: 20100129

REACTIONS (2)
  - DYSPNOEA [None]
  - PULMONARY EMBOLISM [None]
